FAERS Safety Report 4366385-X (Version None)
Quarter: 2004Q2

REPORT INFORMATION
  Report Type: 
  Country: None (occurrence: None)
  Receive Date: 20040526
  Receipt Date: 20040526
  Transmission Date: 20050107
  Serious: Yes (Other)
  Sender: FDA-Public Use
  Company Number: None

PATIENT
  Age: 48 Year
  Sex: Male
  Weight: 67.586 kg

DRUGS (2)
  1. OXYCODONE ER 80 MG [Suspect]
     Indication: ARTHROPATHY
     Dosage: 1 PO TID DECOMPRESSION
     Route: 048
     Dates: start: 20040401, end: 20040524
  2. OXYCODONE ER 80 MG [Suspect]
     Indication: NECROSIS ISCHAEMIC
     Dosage: 1 PO TID DECOMPRESSION
     Route: 048
     Dates: start: 20040401, end: 20040524

REACTIONS (2)
  - AMNESIA [None]
  - LOSS OF CONSCIOUSNESS [None]
